FAERS Safety Report 9158417 (Version 1)
Quarter: 2013Q1

REPORT INFORMATION
  Report Type: Report from Study
  Country: CA (occurrence: CA)
  Receive Date: 20130312
  Receipt Date: 20130312
  Transmission Date: 20140127
  Serious: Yes (Other)
  Sender: FDA-Public Use
  Company Number: CA-JNJFOC-20130300692

PATIENT
  Age: 51 Year
  Sex: Female
  Weight: 80.3 kg

DRUGS (9)
  1. REMICADE [Suspect]
     Indication: RHEUMATOID ARTHRITIS
     Dosage: 93RD INFUSION
     Route: 042
     Dates: start: 20130117
  2. REMICADE [Suspect]
     Indication: RHEUMATOID ARTHRITIS
     Route: 042
     Dates: start: 20020904
  3. FUROSEMIDE [Concomitant]
     Route: 065
  4. METOPROLOL [Concomitant]
     Route: 065
  5. ACETYL SALICYLIC ACID [Concomitant]
     Route: 065
  6. TYLENOL [Concomitant]
     Route: 065
  7. MISOPROSTOL [Concomitant]
     Route: 065
  8. LEFLUNOMIDE [Concomitant]
     Route: 048
  9. DICLOFENAC [Concomitant]
     Route: 065

REACTIONS (2)
  - Systemic lupus erythematosus [Not Recovered/Not Resolved]
  - Eczema [Not Recovered/Not Resolved]
